FAERS Safety Report 7375003-8 (Version None)
Quarter: 2011Q1

REPORT INFORMATION
  Report Type: 
  Country: None (occurrence: None)
  Receive Date: 20110325
  Receipt Date: 20110321
  Transmission Date: 20110831
  Serious: Yes (Death)
  Sender: FDA-Public Use
  Company Number: PHHY2011MX23037

PATIENT
  Sex: Male

DRUGS (1)
  1. RASILEZ [Suspect]
     Indication: HYPERTENSION
     Dosage: 150 MG, PER DAY
     Dates: start: 20100101

REACTIONS (4)
  - CONVULSION [None]
  - SYNCOPE [None]
  - HYPOTENSION [None]
  - FATIGUE [None]
